FAERS Safety Report 9791437 (Version 1)
Quarter: 2014Q1

REPORT INFORMATION
  Report Type: Spontaneous
  Country: FR (occurrence: FR)
  Receive Date: 20140101
  Receipt Date: 20140101
  Transmission Date: 20141002
  Serious: Yes (Other)
  Sender: FDA-Public Use
  Company Number: PHHY2013FR153023

PATIENT
  Age: 54 Year
  Sex: Female

DRUGS (7)
  1. SANDOSTATINE LAR [Suspect]
     Indication: BEHCET^S SYNDROME
     Dosage: 30 MG, EVERY 2 WEEKS
     Route: 030
     Dates: start: 20131031, end: 20131203
  2. SANDOSTATINE LAR [Suspect]
     Indication: OFF LABEL USE
  3. EXFORGE [Concomitant]
     Dosage: UNK UKN, UNK
  4. PLAQUENIL [Concomitant]
     Dosage: UNK UKN, UNK
  5. VITAMIN B12 [Concomitant]
     Dosage: UNK UKN, UNK
  6. ATARAX                                  /POR/ [Concomitant]
     Dosage: 25 MG
  7. EXACYL [Concomitant]
     Dosage: 500 MG

REACTIONS (1)
  - Angioedema [Recovered/Resolved]
